FAERS Safety Report 18833562 (Version 1)
Quarter: 2021Q1

REPORT INFORMATION
  Report Type: Other
  Country: US (occurrence: US)
  Receive Date: 20210203
  Receipt Date: 20210203
  Transmission Date: 20210419
  Serious: No
  Sender: FDA-Public Use
  Company Number: US-ROCHE-2758973

PATIENT
  Age: 37 Year
  Sex: Female
  Weight: 70.3 kg

DRUGS (7)
  1. OCREVUS [Suspect]
     Active Substance: OCRELIZUMAB
     Indication: RELAPSING MULTIPLE SCLEROSIS
     Dosage: INFUSION MONTHLY AFTER 2ND INITIAL DOSE
     Route: 042
     Dates: start: 20200618
  2. NEURONTIN [Concomitant]
     Active Substance: GABAPENTIN
  3. TECFIDERA [Concomitant]
     Active Substance: DIMETHYL FUMARATE
  4. CARDIZEM [Concomitant]
     Active Substance: DILTIAZEM HYDROCHLORIDE
  5. MOTRIN [Concomitant]
     Active Substance: IBUPROFEN
  6. TOPAMAX [Concomitant]
     Active Substance: TOPIRAMATE
  7. ALDACTONE [Concomitant]
     Active Substance: SPIRONOLACTONE

REACTIONS (1)
  - COVID-19 [Recovered/Resolved]

NARRATIVE: CASE EVENT DATE: 202011
